FAERS Safety Report 9274566 (Version 6)
Quarter: 2013Q4

REPORT INFORMATION
  Report Type: Spontaneous
  Country: US (occurrence: US)
  Receive Date: 20130507
  Receipt Date: 20131008
  Transmission Date: 20140711
  Serious: Yes (Hospitalization, Other)
  Sender: FDA-Public Use
  Company Number: US-009507513-1305USA000488

PATIENT
  Age: 47 Year
  Sex: Female

DRUGS (4)
  1. PEGINTRON [Suspect]
     Indication: CHRONIC HEPATITIS C
     Dosage: REDIPEN 120 MG, QW
     Route: 058
     Dates: start: 20130417
  2. VICTRELIS [Suspect]
     Indication: CHRONIC HEPATITIS C
     Dosage: UNK
     Route: 048
     Dates: start: 20130515, end: 20130611
  3. VICTRELIS [Suspect]
     Dosage: 3 AT A TIME
     Route: 048
     Dates: start: 20130612, end: 20130731
  4. RIBASPHERE [Suspect]
     Indication: CHRONIC HEPATITIS C
     Dosage: UNK
     Dates: start: 20130417

REACTIONS (30)
  - Blood potassium decreased [Unknown]
  - Dehydration [Unknown]
  - Injection site haemorrhage [Recovered/Resolved]
  - Product quality issue [Unknown]
  - Cystitis [Unknown]
  - Kidney infection [Unknown]
  - Anaemia [Recovering/Resolving]
  - Back pain [Unknown]
  - Sciatica [Unknown]
  - Pain in extremity [Unknown]
  - Oral pain [Recovered/Resolved]
  - Contusion [Unknown]
  - White blood cell count increased [Unknown]
  - Pollakiuria [Unknown]
  - Drug administration error [Unknown]
  - Fatigue [Unknown]
  - Dyspnoea [Unknown]
  - Asthenia [Unknown]
  - Pyrexia [Unknown]
  - Abdominal pain upper [Unknown]
  - Pancreatitis [Unknown]
  - Hallucination [Unknown]
  - Cardiac failure [Unknown]
  - Nasopharyngitis [Unknown]
  - Depression [Unknown]
  - Intentional self-injury [Unknown]
  - Anxiety [Unknown]
  - Weight decreased [Unknown]
  - Abdominal distension [Unknown]
  - Feeling abnormal [Unknown]
